FAERS Safety Report 24664676 (Version 2)
Quarter: 2024Q4

REPORT INFORMATION
  Report Type: Spontaneous
  Country: ZA (occurrence: ZA)
  Receive Date: 20241126
  Receipt Date: 20241206
  Transmission Date: 20250115
  Serious: Yes (Hospitalization, Other)
  Sender: BAYER HEALTHCARE PHARMACEUTICALS INC.
  Company Number: ZA-BAYER-2024A165933

PATIENT
  Age: 57 Year
  Sex: Female

DRUGS (17)
  1. ANGELIQ [Suspect]
     Active Substance: DROSPIRENONE\ESTRADIOL
     Indication: Menopause
     Dosage: 1 DF, QD
     Route: 048
  2. ANGELIQ [Suspect]
     Active Substance: DROSPIRENONE\ESTRADIOL
     Indication: Hormone replacement therapy
  3. CIPLOXX [Concomitant]
     Dosage: 1 DF, BID
     Route: 048
  4. MIRTAZAPINE [Concomitant]
     Active Substance: MIRTAZAPINE
     Indication: Depression
     Dosage: 30 MG
     Route: 048
  5. METOCLOPRAMIDE HYDROCHLORIDE [Concomitant]
     Active Substance: METOCLOPRAMIDE HYDROCHLORIDE
     Dosage: 1 DF, QD
     Route: 048
  6. LEVOTHYROXINE [Concomitant]
     Active Substance: LEVOTHYROXINE
     Indication: Hypothyroidism
     Dosage: 1 DF
     Route: 048
  7. LEVOTHYROXINE [Concomitant]
     Active Substance: LEVOTHYROXINE
     Indication: Hypothyroidism
     Dosage: 100 ?G
     Route: 048
  8. SIMVASTATIN [Concomitant]
     Active Substance: SIMVASTATIN
     Indication: Blood cholesterol
     Route: 048
  9. Stilpane [Concomitant]
     Indication: Pain
     Dosage: 2 DF, TID
     Route: 048
  10. Medazine [Concomitant]
     Dosage: 1 DF, TID
     Route: 048
  11. OMEPRAZOLE [Concomitant]
     Active Substance: OMEPRAZOLE
     Indication: Gastrooesophageal reflux disease
     Dosage: 1 DF
     Route: 048
  12. BETAMETHASONE VALERATE [Concomitant]
     Active Substance: BETAMETHASONE VALERATE
     Indication: Dermatitis allergic
     Dosage: 0.1 %, TID
     Route: 061
  13. MACRODANTIN [Concomitant]
     Active Substance: NITROFURANTOIN
     Indication: Urinary tract infection
     Dosage: 1 DF, QD
     Route: 048
  14. CITRIC ACID MONOHYDRATE\SODIUM BICARBONATE\SODIUM CITRATE\TARTARIC ACI [Concomitant]
     Active Substance: CITRIC ACID MONOHYDRATE\SODIUM BICARBONATE\SODIUM CITRATE\TARTARIC ACID
     Route: 048
  15. Synaleve [Concomitant]
     Indication: Pain
     Dosage: 2 DF, TID
     Route: 048
  16. LENOLAX [Concomitant]
     Route: 054
  17. FLAVOSPAS [Concomitant]
     Indication: Hypertonic bladder
     Dosage: 1 DF, TID
     Route: 048

REACTIONS (2)
  - Uterine injury [None]
  - Malaise [None]
